FAERS Safety Report 8431194-9 (Version None)
Quarter: 2012Q2

REPORT INFORMATION
  Report Type: 
  Country: None (occurrence: None)
  Receive Date: 20120612
  Receipt Date: 20120609
  Transmission Date: 20120825
  Serious: Yes (Death, Other)
  Sender: FDA-Public Use
  Company Number: PHHY2012US049421

PATIENT
  Age: 18 Year
  Sex: Male

DRUGS (8)
  1. MYCOPHENOLATE MOFETIL [Suspect]
     Indication: IMMUNOSUPPRESSION
  2. SULFAMETHOXAZOLE [Concomitant]
  3. PREDNISONE [Suspect]
     Indication: IMMUNOSUPPRESSION
  4. BASILIXIMAB [Suspect]
     Indication: IMMUNOSUPPRESSION
  5. TRIMETHOPRIM [Concomitant]
  6. VALGANCICLOVIR [Concomitant]
  7. TACROLIMUS [Suspect]
     Indication: IMMUNOSUPPRESSION
  8. CORTICOSTEROIDS [Concomitant]

REACTIONS (3)
  - SUDDEN CARDIAC DEATH [None]
  - SYNCOPE [None]
  - ATRIAL FIBRILLATION [None]
